FAERS Safety Report 7862581-5 (Version None)
Quarter: 2011Q4

REPORT INFORMATION
  Report Type: 
  Country: None (occurrence: None)
  Receive Date: 20111027
  Receipt Date: 20101109
  Transmission Date: 20120403
  Serious: No
  Sender: FDA-Public Use
  Company Number: US-AMGEN-USASP2010004590

PATIENT
  Age: 72 Year
  Sex: Female

DRUGS (1)
  1. ENBREL [Suspect]
     Indication: RHEUMATOID ARTHRITIS
     Dosage: 50 MG, QWK
     Dates: start: 20080301

REACTIONS (5)
  - WRIST FRACTURE [None]
  - ARTHROPATHY [None]
  - RHEUMATOID ARTHRITIS [None]
  - FALL [None]
  - ARTHRALGIA [None]
